FAERS Safety Report 5220108-0 (Version None)
Quarter: 2007Q1

REPORT INFORMATION
  Report Type: 
  Country: None (occurrence: None)
  Receive Date: 20061121
  Receipt Date: 20060804
  Transmission Date: 20070707
  Serious: No
  Sender: FDA-Public Use
  Company Number: TPA2006A01277

PATIENT
  Age: 44 Year
  Sex: Female
  Weight: 72.5755 kg

DRUGS (2)
  1. ROZEREM [Suspect]
     Indication: INITIAL INSOMNIA
     Dosage: 8 MG, QHS, PER ORAL
     Route: 048
     Dates: start: 20060802, end: 20060804
  2. ACIPHEX [Concomitant]

REACTIONS (4)
  - HEADACHE [None]
  - INITIAL INSOMNIA [None]
  - PALPITATIONS [None]
  - POOR QUALITY SLEEP [None]
